FAERS Safety Report 18727655 (Version 3)
Quarter: 2022Q1

REPORT INFORMATION
  Report Type: Report from Study
  Country: US (occurrence: US)
  Receive Date: 20210111
  Receipt Date: 20220318
  Transmission Date: 20220423
  Serious: Yes (Life-Threatening, Hospitalization, Other)
  Sender: FDA-Public Use
  Company Number: US-TAKEDA-US202014559

PATIENT
  Age: 50 Year
  Sex: Female
  Weight: 118 kg

DRUGS (13)
  1. LANADELUMAB [Suspect]
     Active Substance: LANADELUMAB
     Indication: Hereditary angioedema
     Dosage: 300 MILLIGRAM, Q2WEEKS
     Route: 065
     Dates: start: 20170202
  2. DIOVAN [Concomitant]
     Active Substance: VALSARTAN
     Indication: Hypertension
     Dosage: 160 MILLIGRAM
     Route: 048
     Dates: start: 2003
  3. HYDROCHLOROTHIAZIDE [Concomitant]
     Active Substance: HYDROCHLOROTHIAZIDE
     Indication: Hypertension
     Dosage: 12.5 MILLIGRAM
     Route: 048
     Dates: start: 2003
  4. PERFLUTREN [Concomitant]
     Active Substance: PERFLUTREN
     Indication: Cerebrovascular accident
     Dosage: 1.1 MILLILITER
     Route: 042
     Dates: start: 20200223, end: 20200223
  5. ASPIRIN [Concomitant]
     Active Substance: ASPIRIN
     Indication: Cerebrovascular accident
     Dosage: 81 MILLIGRAM
     Route: 048
     Dates: start: 20200224, end: 20200224
  6. ASPIRIN [Concomitant]
     Active Substance: ASPIRIN
     Dosage: 300 MILLIGRAM
     Route: 054
     Dates: start: 20200222, end: 20200223
  7. ASPIRIN [Concomitant]
     Active Substance: ASPIRIN
     Dosage: 325 MILLIGRAM
     Route: 048
     Dates: start: 20200222, end: 20200223
  8. HUMAN C1-ESTERASE INHIBITOR [Concomitant]
     Active Substance: HUMAN C1-ESTERASE INHIBITOR
     Indication: Cerebrovascular accident
     Dosage: 4200 INTERNATIONAL UNIT
     Route: 042
     Dates: start: 20200222, end: 20200224
  9. ACETAMINOPHEN [Concomitant]
     Active Substance: ACETAMINOPHEN
     Indication: Cerebrovascular accident
     Dosage: 650 MILLIGRAM
     Route: 048
     Dates: start: 20200222, end: 20200224
  10. SODIUM CHLORIDE [Concomitant]
     Active Substance: SODIUM CHLORIDE
     Indication: Cerebrovascular accident
     Dosage: 10 MILLILITER
     Route: 042
     Dates: start: 20200222, end: 20200224
  11. SODIUM CHLORIDE [Concomitant]
     Active Substance: SODIUM CHLORIDE
     Dosage: 20 MILLILITER
     Route: 042
     Dates: start: 20200222, end: 20200224
  12. ATORVASTATIN [Concomitant]
     Active Substance: ATORVASTATIN
     Indication: Cerebrovascular accident
     Dosage: 40 MILLIGRAM
     Route: 048
     Dates: start: 20200222, end: 20200224
  13. CANDESARTAN [Concomitant]
     Active Substance: CANDESARTAN
     Indication: Central pain syndrome
     Dosage: 16 MILLIGRAM
     Route: 048
     Dates: start: 20200223, end: 20200224

REACTIONS (1)
  - Cerebrovascular accident [Recovered/Resolved]

NARRATIVE: CASE EVENT DATE: 20200222
